FAERS Safety Report 19196380 (Version 2)
Quarter: 2022Q3

REPORT INFORMATION
  Report Type: Report from Study
  Country: US (occurrence: None)
  Receive Date: 20210429
  Receipt Date: 20220823
  Transmission Date: 20221027
  Serious: Yes (Hospitalization)
  Sender: FDA-Public Use
  Company Number: US-ROCHE-2817659

PATIENT
  Age: 56 Year
  Sex: Female
  Weight: 84.2 kg

DRUGS (3)
  1. PERTUZUMAB [Suspect]
     Active Substance: PERTUZUMAB
     Indication: Breast cancer metastatic
     Dosage: LAST DOSE PRIOR TO EVENT 10/01/2017
     Route: 065
     Dates: start: 20161101
  2. TRASTUZUMAB [Suspect]
     Active Substance: TRASTUZUMAB
     Indication: Breast cancer metastatic
     Dosage: LAST DOSE PRIOR TO EVENT 10/01/2017
     Route: 065
     Dates: start: 20161101
  3. GEMCITABINE [Suspect]
     Active Substance: GEMCITABINE
     Indication: Breast cancer metastatic
     Dosage: ROUTE ; IVPB
     Route: 065
     Dates: start: 20161101, end: 20170117

REACTIONS (1)
  - Cellulitis [Recovered/Resolved]

NARRATIVE: CASE EVENT DATE: 20170121
